FAERS Safety Report 5594015-8 (Version None)
Quarter: 2008Q1

REPORT INFORMATION
  Report Type: 
  Country: None (occurrence: None)
  Receive Date: 20080116
  Receipt Date: 20080106
  Transmission Date: 20080703
  Serious: Yes (Other)
  Sender: FDA-Public Use
  Company Number: US-PFIZER INC-2008001748

PATIENT
  Sex: Female
  Weight: 69.5 kg

DRUGS (2)
  1. LYRICA [Suspect]
     Indication: FIBROMYALGIA
  2. TRAMADOL HCL [Concomitant]
     Indication: PAIN

REACTIONS (2)
  - DYSPNOEA [None]
  - HEART RATE INCREASED [None]
